FAERS Safety Report 9482088 (Version 1)
Quarter: 2013Q3

REPORT INFORMATION
  Report Type: Spontaneous
  Country: GB (occurrence: GB)
  Receive Date: 20130828
  Receipt Date: 20130828
  Transmission Date: 20140515
  Serious: Yes (Other)
  Sender: FDA-Public Use
  Company Number: PHFR2013GB004879

PATIENT
  Age: 17 Year
  Sex: Female

DRUGS (3)
  1. TIMOLOL [Suspect]
     Indication: GLAUCOMA
     Dosage: 0.5 %, BID (TWICE DAILY)
  2. PILOCARPINE [Suspect]
     Indication: GLAUCOMA
     Dosage: 4 %, QD
  3. BIMATOPROST [Concomitant]
     Dosage: 0.03 %, QD (AT NIGHT)
     Dates: start: 2000

REACTIONS (5)
  - Iris adhesions [Unknown]
  - Pupillary reflex impaired [Unknown]
  - Optic nerve cup/disc ratio [Unknown]
  - Chorioretinal atrophy [Unknown]
  - Vision blurred [Unknown]
